FAERS Safety Report 11192749 (Version 2)
Quarter: 2015Q2

REPORT INFORMATION
  Report Type: Report from Study
  Country: CN (occurrence: CN)
  Receive Date: 20150616
  Receipt Date: 20150619
  Transmission Date: 20150821
  Serious: Yes (Life-Threatening)
  Sender: FDA-Public Use
  Company Number: CN-ASTRAZENECA-2015SE58929

PATIENT
  Age: 17631 Day
  Sex: Male

DRUGS (8)
  1. BAYASPIRIN [Suspect]
     Active Substance: ASPIRIN
     Indication: ACUTE CORONARY SYNDROME
     Route: 048
     Dates: start: 20140923
  2. METOPROLOL SUCCINATE. [Concomitant]
     Active Substance: METOPROLOL SUCCINATE
     Indication: CORONARY ARTERY DISEASE
     Route: 048
     Dates: start: 20140923
  3. BRILINTA [Suspect]
     Active Substance: TICAGRELOR
     Indication: ACUTE CORONARY SYNDROME
     Dosage: LOADING DOSE
     Route: 048
     Dates: start: 20140801
  4. HEPARIN [Concomitant]
     Active Substance: HEPARIN SODIUM
     Indication: PROPHYLAXIS
     Route: 042
     Dates: start: 20140801
  5. ROSUVASTATIN CALCIUM. [Concomitant]
     Active Substance: ROSUVASTATIN CALCIUM
     Indication: DYSLIPIDAEMIA
     Route: 048
     Dates: start: 20140923
  6. BRILINTA [Suspect]
     Active Substance: TICAGRELOR
     Indication: ACUTE CORONARY SYNDROME
     Dosage: MAINTAIN DOSE
     Route: 048
     Dates: start: 20140802
  7. BAYASPIRIN [Suspect]
     Active Substance: ASPIRIN
     Indication: ACUTE CORONARY SYNDROME
     Dosage: NON-AZ PRODUCT
     Route: 048
     Dates: start: 20140801, end: 20140901
  8. PROBUCOL [Concomitant]
     Active Substance: PROBUCOL
     Indication: DYSLIPIDAEMIA
     Route: 048
     Dates: start: 20140923

REACTIONS (1)
  - Upper gastrointestinal haemorrhage [Recovering/Resolving]

NARRATIVE: CASE EVENT DATE: 20150419
